FAERS Safety Report 18855865 (Version 2)
Quarter: 2021Q1

REPORT INFORMATION
  Report Type: Spontaneous
  Country: FR (occurrence: FR)
  Receive Date: 20210206
  Receipt Date: 20210223
  Transmission Date: 20210420
  Serious: Yes (Hospitalization, Other)
  Sender: FDA-Public Use
  Company Number: FR-AUROBINDO-AUR-APL-2021-005246

PATIENT
  Age: 78 Year
  Sex: Male
  Weight: 56 kg

DRUGS (3)
  1. CEFTRIAXONE. [Suspect]
     Active Substance: CEFTRIAXONE
     Indication: INFECTION
     Dosage: 1 DOSAGE FORM, ONCE A DAY
     Route: 042
     Dates: start: 20200927, end: 20201001
  2. AMOXICILLIN ARROW [Suspect]
     Active Substance: AMOXICILLIN
     Indication: INFECTION
     Dosage: 2 GRAM, 3 TIMES A DAY
     Route: 042
     Dates: start: 20200929, end: 20200930
  3. ACICLOVIR MYLAN [Suspect]
     Active Substance: ACYCLOVIR
     Indication: INFECTION
     Dosage: 600 MILLIGRAM,TOTAL
     Route: 042
     Dates: start: 20200929, end: 20200929

REACTIONS (5)
  - Rash erythematous [Recovered/Resolved]
  - Eosinophilia [Recovered/Resolved]
  - Renal failure [Recovered/Resolved]
  - Hepatocellular injury [Recovered/Resolved]
  - Pruritus [Recovered/Resolved]

NARRATIVE: CASE EVENT DATE: 20200930
